FAERS Safety Report 12105723 (Version 1)
Quarter: 2016Q1

REPORT INFORMATION
  Report Type: Spontaneous
  Country: US (occurrence: US)
  Receive Date: 20160223
  Receipt Date: 20160223
  Transmission Date: 20160526
  Serious: No
  Sender: FDA-Public Use
  Company Number: US-VIIV HEALTHCARE LIMITED-US2016023240

PATIENT
  Age: 69 Year
  Sex: Male

DRUGS (5)
  1. TRIUMEQ [Suspect]
     Active Substance: ABACAVIR SULFATE\DOLUTEGRAVIR SODIUM\LAMIVUDINE
     Indication: HIV INFECTION
     Dosage: UNK
     Route: 048
     Dates: start: 201601
  2. VITAMIN C [Concomitant]
     Active Substance: ASCORBIC ACID
  3. ALLOPURINOL. [Concomitant]
     Active Substance: ALLOPURINOL
  4. ABACAVIR. [Concomitant]
     Active Substance: ABACAVIR
  5. FOLIC ACID. [Concomitant]
     Active Substance: FOLIC ACID

REACTIONS (4)
  - Ear disorder [Not Recovered/Not Resolved]
  - Dysacusis [Recovered/Resolved]
  - Underdose [Unknown]
  - Inappropriate schedule of drug administration [Unknown]

NARRATIVE: CASE EVENT DATE: 201601
